FAERS Safety Report 14478713 (Version 2)
Quarter: 2018Q1

REPORT INFORMATION
  Report Type: Spontaneous
  Country: HR (occurrence: HR)
  Receive Date: 20180202
  Receipt Date: 20180307
  Transmission Date: 20180509
  Serious: Yes (Death, Life-Threatening, Other)
  Sender: FDA-Public Use
  Company Number: HR-SUN PHARMACEUTICAL INDUSTRIES LTD-2018R1-161958

PATIENT
  Age: 68 Year
  Sex: Female

DRUGS (1)
  1. RYTMONORM [Suspect]
     Active Substance: PROPAFENONE
     Indication: PRODUCT USED FOR UNKNOWN INDICATION
     Dosage: UNK
     Route: 065

REACTIONS (10)
  - Hypotension [Unknown]
  - Depressive symptom [Unknown]
  - Depressed level of consciousness [Unknown]
  - Overdose [Fatal]
  - Bradycardia [Unknown]
  - Atrial fibrillation [Unknown]
  - Cardiac arrest [Fatal]
  - Electrocardiogram QRS complex prolonged [Unknown]
  - Cardiac failure [Fatal]
  - Metabolic acidosis [Unknown]
